FAERS Safety Report 4894871-2 (Version None)
Quarter: 2006Q1

REPORT INFORMATION
  Report Type: 
  Country: None (occurrence: None)
  Receive Date: 20060130
  Receipt Date: 19990421
  Transmission Date: 20060701
  Serious: No
  Sender: FDA-Public Use
  Company Number: M096358

PATIENT
  Age: 75 Year
  Sex: Male
  Weight: 62 kg

DRUGS (6)
  1. GLUCOPHAGE [Suspect]
     Indication: DIABETES MELLITUS NON-INSULIN-DEPENDENT
     Route: 048
     Dates: start: 19990205
  2. MICRONASE [Concomitant]
  3. TRENTAL [Concomitant]
  4. AVANDIA [Concomitant]
  5. LANTUS [Concomitant]
  6. HUMALOG [Concomitant]

REACTIONS (5)
  - ANAEMIA [None]
  - ANOREXIA [None]
  - BLOOD GLUCOSE FLUCTUATION [None]
  - NAUSEA [None]
  - WEIGHT DECREASED [None]
